FAERS Safety Report 10965985 (Version 1)
Quarter: 2015Q1

REPORT INFORMATION
  Report Type: Spontaneous
  Country: RU (occurrence: RU)
  Receive Date: 20150330
  Receipt Date: 20150330
  Transmission Date: 20150721
  Serious: Yes (Death, Life-Threatening, Hospitalization)
  Sender: FDA-Public Use
  Company Number: RU-SA-2015SA005952

PATIENT
  Age: 27 Month
  Sex: Female
  Weight: 10 kg

DRUGS (1)
  1. MYOZYME [Suspect]
     Active Substance: ALGLUCOSIDASE ALFA
     Indication: GLYCOGEN STORAGE DISEASE TYPE II
     Dosage: 200 MG, 4 VIALS FOR 1 INFUSION, 2 TIMES A MONTH
     Route: 041
     Dates: end: 20150321

REACTIONS (7)
  - General physical health deterioration [Unknown]
  - Multi-organ failure [Fatal]
  - Pneumonia [Not Recovered/Not Resolved]
  - Pyrexia [Unknown]
  - Respiratory failure [Fatal]
  - Asthenia [Unknown]
  - Cardiac failure [Fatal]

NARRATIVE: CASE EVENT DATE: 20141230
